FAERS Safety Report 4546791-0 (Version None)
Quarter: 2005Q1

REPORT INFORMATION
  Report Type: 
  Country: None (occurrence: None)
  Receive Date: 20050105
  Receipt Date: 20041223
  Transmission Date: 20050727
  Serious: Yes (Other)
  Sender: FDA-Public Use
  Company Number: 200510006BVD

PATIENT
  Age: 41 Year
  Sex: Female

DRUGS (2)
  1. AVELOX [Suspect]
     Dosage: 400 MG, TOTAL DAILY, ORAL
     Route: 048
     Dates: start: 20041101
  2. EUTHYROX [Concomitant]

REACTIONS (4)
  - MALAISE [None]
  - PERIPHERAL COLDNESS [None]
  - TREMOR [None]
  - VERTIGO [None]
